FAERS Safety Report 10191760 (Version 1)
Quarter: 2014Q2

REPORT INFORMATION
  Report Type: Spontaneous
  Country: US (occurrence: US)
  Receive Date: 20140523
  Receipt Date: 20140523
  Transmission Date: 20141212
  Serious: Yes (Other)
  Sender: FDA-Public Use
  Company Number: US-TARO PHARMACEUTICALS U.S.A., INC-2014SUN01132

PATIENT
  Age: 68 Year
  Sex: Male

DRUGS (2)
  1. LEVETIRACETAM [Suspect]
     Indication: PARTIAL SEIZURES
     Route: 065
  2. PHENYTOIN SODIUM [Suspect]
     Indication: CONVULSION
     Route: 065

REACTIONS (4)
  - Blepharospasm [Recovered/Resolved]
  - Grimacing [Recovered/Resolved]
  - Dystonia [Recovered/Resolved]
  - Convulsion [Recovered/Resolved]
